FAERS Safety Report 13388521 (Version 1)
Quarter: 2017Q1

REPORT INFORMATION
  Report Type: Spontaneous
  Country: US (occurrence: US)
  Receive Date: 20170331
  Receipt Date: 20170331
  Transmission Date: 20170429
  Serious: Yes (Other)
  Sender: FDA-Public Use
  Company Number: US-BRISTOL-MYERS SQUIBB COMPANY-BMS-2017-025739

PATIENT
  Sex: Female

DRUGS (1)
  1. ELIQUIS [Suspect]
     Active Substance: APIXABAN
     Indication: CEREBROVASCULAR ACCIDENT PROPHYLAXIS
     Dosage: 2.5 MG, BID
     Route: 048
     Dates: start: 20170322

REACTIONS (9)
  - Fatigue [Unknown]
  - Nausea [Unknown]
  - Dyspnoea exertional [Unknown]
  - Insomnia [Unknown]
  - Gait disturbance [Unknown]
  - Restlessness [Unknown]
  - Hypotension [Unknown]
  - Heart rate increased [Unknown]
  - Drug dose omission [Unknown]
